FAERS Safety Report 6550512-X (Version None)
Quarter: 2010Q1

REPORT INFORMATION
  Report Type: 
  Country: None (occurrence: None)
  Receive Date: 20100125
  Receipt Date: 20100118
  Transmission Date: 20100710
  Serious: Yes (Hospitalization)
  Sender: FDA-Public Use
  Company Number: B0616600A

PATIENT
  Sex: Female

DRUGS (5)
  1. RELENZA [Suspect]
     Indication: INFLUENZA
     Dosage: 10MG PER DAY
     Route: 055
     Dates: start: 20091208, end: 20091208
  2. ASVERIN [Concomitant]
     Indication: COUGH
     Dosage: 10MG TWICE PER DAY
     Route: 048
     Dates: start: 20091207, end: 20091208
  3. COCARL [Concomitant]
     Route: 048
     Dates: start: 20091207, end: 20091208
  4. COUGHNOL [Concomitant]
     Indication: COUGH
     Dosage: 15MG TWICE PER DAY
     Route: 048
     Dates: start: 20091207, end: 20091208
  5. PERIACTIN [Concomitant]
     Dosage: 2MG TWICE PER DAY
     Route: 048
     Dates: start: 20091207, end: 20091208

REACTIONS (5)
  - CONVULSION [None]
  - DISORIENTATION [None]
  - HEADACHE [None]
  - LOSS OF CONSCIOUSNESS [None]
  - SOMNOLENCE [None]
